FAERS Safety Report 25183863 (Version 2)
Quarter: 2025Q2

REPORT INFORMATION
  Report Type: Spontaneous
  Country: FR (occurrence: FR)
  Receive Date: 20250410
  Receipt Date: 20250417
  Transmission Date: 20250717
  Serious: Yes (Hospitalization, Other)
  Sender: SAMSUNG BIOEPIS
  Company Number: None

PATIENT
  Age: 71 Year
  Sex: Male
  Weight: 65.4 kg

DRUGS (8)
  1. TRASTUZUMAB [Suspect]
     Active Substance: TRASTUZUMAB
     Indication: Oesophageal adenocarcinoma stage III
     Dosage: C1;
     Route: 042
     Dates: start: 20250207, end: 20250207
  2. TRASTUZUMAB [Suspect]
     Active Substance: TRASTUZUMAB
     Dosage: C2;
     Route: 042
     Dates: start: 20250224, end: 20250224
  3. FLUOROURACIL [Suspect]
     Active Substance: FLUOROURACIL
     Indication: Oesophageal adenocarcinoma stage III
     Route: 042
     Dates: start: 20250207, end: 20250207
  4. FLUOROURACIL [Suspect]
     Active Substance: FLUOROURACIL
     Dosage: 46 HOUR INFUSION;
     Route: 042
     Dates: start: 20250207, end: 20250209
  5. FLUOROURACIL [Suspect]
     Active Substance: FLUOROURACIL
     Route: 042
     Dates: start: 20250224, end: 20250224
  6. FLUOROURACIL [Suspect]
     Active Substance: FLUOROURACIL
     Dosage: 46 HOUR INFUSION;
     Route: 042
     Dates: start: 20250224, end: 20250226
  7. OXALIPLATIN [Suspect]
     Active Substance: OXALIPLATIN
     Indication: Oesophageal adenocarcinoma stage III
     Dosage: C1;
     Route: 042
     Dates: start: 20250207, end: 20250207
  8. OXALIPLATIN [Suspect]
     Active Substance: OXALIPLATIN
     Dosage: C2;
     Route: 042
     Dates: start: 20250224, end: 20250224

REACTIONS (5)
  - Palmar-plantar erythrodysaesthesia syndrome [Recovering/Resolving]
  - Diarrhoea [Recovering/Resolving]
  - Stomatitis [Recovering/Resolving]
  - Erythema [Recovered/Resolved]
  - Off label use [Unknown]

NARRATIVE: CASE EVENT DATE: 20250209
